FAERS Safety Report 6273926-4 (Version None)
Quarter: 2009Q3

REPORT INFORMATION
  Report Type: 
  Country: None (occurrence: None)
  Receive Date: 20090720
  Receipt Date: 20070531
  Transmission Date: 20100115
  Serious: Yes (Hospitalization)
  Sender: FDA-Public Use
  Company Number: US-ASTRAZENECA-2006UW23079

PATIENT
  Age: 16712 Day
  Sex: Male
  Weight: 89.4 kg

DRUGS (11)
  1. SEROQUEL [Suspect]
     Indication: DEPRESSION
     Dosage: 20 MG TO 600 MG
     Route: 048
     Dates: start: 19990915
  2. SEROQUEL [Suspect]
     Indication: ANXIETY
     Dosage: 20 MG TO 600 MG
     Route: 048
     Dates: start: 19990915
  3. SEROQUEL [Suspect]
     Route: 048
     Dates: start: 20041203
  4. SEROQUEL [Suspect]
     Route: 048
     Dates: start: 20041203
  5. RISPERDAL [Concomitant]
  6. THORAZINE [Concomitant]
  7. ZOLOFT [Concomitant]
  8. NEURONTIN [Concomitant]
     Route: 048
     Dates: start: 20020527
  9. KLONOPIN [Concomitant]
     Dosage: 0.5 MG TO 12 MG
     Route: 048
     Dates: start: 19990915
  10. PERCOCET [Concomitant]
     Indication: PAIN
     Dosage: 1 TO 2 TABLET FOUR TIMES A DAY
     Route: 048
     Dates: start: 20020527
  11. TORADOL [Concomitant]
     Route: 048
     Dates: start: 20040107

REACTIONS (2)
  - ACUTE RESPIRATORY FAILURE [None]
  - DIABETES MELLITUS [None]
